FAERS Safety Report 8072019-3 (Version None)
Quarter: 2012Q1

REPORT INFORMATION
  Report Type: 
  Country: None (occurrence: None)
  Receive Date: 20120126
  Receipt Date: 20120123
  Transmission Date: 20120608
  Serious: Yes (Other)
  Sender: FDA-Public Use
  Company Number: US-BAYER-2012-007594

PATIENT
  Age: 58 Year
  Sex: Female

DRUGS (1)
  1. CIPROFLOXACIN [Suspect]

REACTIONS (3)
  - DRUG HYPERSENSITIVITY [None]
  - URTICARIA [None]
  - RASH [None]
